FAERS Safety Report 7718066-X (Version None)
Quarter: 2011Q3

REPORT INFORMATION
  Report Type: 
  Country: None (occurrence: None)
  Receive Date: 20110830
  Receipt Date: 20110818
  Transmission Date: 20111222
  Serious: Yes (Hospitalization)
  Sender: FDA-Public Use
  Company Number: JP-ASTRAZENECA-2011SE51338

PATIENT
  Age: 78 Year
  Sex: Male

DRUGS (3)
  1. MEROPENEM [Suspect]
     Indication: MENINGITIS
     Route: 042
     Dates: start: 20110412
  2. LYRICA [Concomitant]
  3. VANCOMYCIN HCL [Concomitant]

REACTIONS (1)
  - TUBULOINTERSTITIAL NEPHRITIS [None]
